FAERS Safety Report 9493177 (Version 2)
Quarter: 2013Q3

REPORT INFORMATION
  Report Type: Spontaneous
  Country: BE (occurrence: BE)
  Receive Date: 20130902
  Receipt Date: 20130902
  Transmission Date: 20140515
  Serious: Yes (Other)
  Sender: FDA-Public Use
  Company Number: BE-BRISTOL-MYERS SQUIBB COMPANY-17160128

PATIENT
  Age: 23 Year
  Sex: Female
  Weight: 67 kg

DRUGS (3)
  1. REYATAZ [Suspect]
     Indication: HIV INFECTION
     Route: 048
     Dates: start: 20090420
  2. NORVIR [Suspect]
     Indication: HIV INFECTION
     Route: 048
     Dates: start: 20090420
  3. TRUVADA [Suspect]
     Indication: HIV INFECTION
     Dosage: 1DF:200/245MG
     Route: 048
     Dates: start: 20090420

REACTIONS (4)
  - Nephrolithiasis [Unknown]
  - Pregnancy [Recovered/Resolved]
  - Live birth [Unknown]
  - Premature rupture of membranes [Unknown]
